FAERS Safety Report 9516724 (Version 3)
Quarter: 2013Q4

REPORT INFORMATION
  Report Type: Spontaneous
  Country: IT (occurrence: IT)
  Receive Date: 20130911
  Receipt Date: 20131004
  Transmission Date: 20140711
  Serious: Yes (Hospitalization, Other)
  Sender: FDA-Public Use
  Company Number: IT-ELI_LILLY_AND_COMPANY-IT201309001787

PATIENT
  Age: 85 Year
  Sex: Male

DRUGS (13)
  1. HUMALOG LISPRO [Suspect]
     Indication: DIABETES MELLITUS
     Dosage: 30 IU, QD
     Route: 058
     Dates: start: 20130101, end: 20130805
  2. HUMALOG LISPRO [Suspect]
     Dosage: UNK
  3. LANTUS [Suspect]
     Indication: DIABETES MELLITUS
     Dosage: 20 IU, QD
     Route: 058
     Dates: start: 20130601, end: 20130804
  4. LANTUS [Suspect]
     Dosage: UNK
  5. PLAVIX [Suspect]
     Indication: THROMBOSIS PROPHYLAXIS
     Dosage: 75 MG, QD
     Route: 048
     Dates: start: 20130101, end: 20130805
  6. CARDIOASPIRIN [Suspect]
     Indication: THROMBOSIS PROPHYLAXIS
     Dosage: 100 MG, QD
     Route: 048
     Dates: start: 20130101, end: 20130805
  7. CARDIOASPIRIN [Suspect]
     Dosage: UNK
  8. BISOPROLOL FUMARATE [Concomitant]
     Dosage: 5 MG, UNK
     Route: 048
  9. PANTOPRAZOLE [Concomitant]
     Dosage: 40 MG, UNK
     Route: 048
  10. SIMVASTATIN [Concomitant]
     Dosage: 20 MG, UNK
     Route: 048
  11. NORVASC [Concomitant]
     Dosage: 5 MG, UNK
     Route: 048
  12. TRIATEC [Concomitant]
     Dosage: 5 MG, UNK
     Route: 048
  13. LASIX [Concomitant]
     Route: 048

REACTIONS (3)
  - Rectal haemorrhage [Unknown]
  - Unresponsive to stimuli [Unknown]
  - Hypoglycaemia [Unknown]
